FAERS Safety Report 7742262-9 (Version None)
Quarter: 2011Q3

REPORT INFORMATION
  Report Type: 
  Country: None (occurrence: None)
  Receive Date: 20110901
  Receipt Date: 20110825
  Transmission Date: 20111222
  Serious: Yes (Other)
  Sender: FDA-Public Use
  Company Number: 2011SP040255

PATIENT
  Age: 67 Year
  Sex: Female

DRUGS (15)
  1. MIRTAZAPINE [Suspect]
     Indication: ANXIETY
     Dosage: 30 MG;QAM ; 15 MG;QAM ; 30 MG;QAM ; 15 MG;QAM ; 30 MG;QAM ; 45 MG;QAM
     Dates: start: 20081101, end: 20090201
  2. MIRTAZAPINE [Suspect]
     Indication: PANIC ATTACK
     Dosage: 30 MG;QAM ; 15 MG;QAM ; 30 MG;QAM ; 15 MG;QAM ; 30 MG;QAM ; 45 MG;QAM
     Dates: start: 20081101, end: 20090201
  3. MIRTAZAPINE [Suspect]
     Indication: DEPRESSION
     Dosage: 30 MG;QAM ; 15 MG;QAM ; 30 MG;QAM ; 15 MG;QAM ; 30 MG;QAM ; 45 MG;QAM
     Dates: start: 20081101, end: 20090201
  4. MIRTAZAPINE [Suspect]
     Indication: ANXIETY
     Dosage: 30 MG;QAM ; 15 MG;QAM ; 30 MG;QAM ; 15 MG;QAM ; 30 MG;QAM ; 45 MG;QAM
     Dates: start: 20090501, end: 20090801
  5. MIRTAZAPINE [Suspect]
     Indication: PANIC ATTACK
     Dosage: 30 MG;QAM ; 15 MG;QAM ; 30 MG;QAM ; 15 MG;QAM ; 30 MG;QAM ; 45 MG;QAM
     Dates: start: 20090501, end: 20090801
  6. MIRTAZAPINE [Suspect]
     Indication: DEPRESSION
     Dosage: 30 MG;QAM ; 15 MG;QAM ; 30 MG;QAM ; 15 MG;QAM ; 30 MG;QAM ; 45 MG;QAM
     Dates: start: 20090501, end: 20090801
  7. MIRTAZAPINE [Suspect]
     Indication: ANXIETY
     Dosage: 30 MG;QAM ; 15 MG;QAM ; 30 MG;QAM ; 15 MG;QAM ; 30 MG;QAM ; 45 MG;QAM
     Dates: start: 20080601
  8. MIRTAZAPINE [Suspect]
     Indication: PANIC ATTACK
     Dosage: 30 MG;QAM ; 15 MG;QAM ; 30 MG;QAM ; 15 MG;QAM ; 30 MG;QAM ; 45 MG;QAM
     Dates: start: 20080601
  9. MIRTAZAPINE [Suspect]
     Indication: DEPRESSION
     Dosage: 30 MG;QAM ; 15 MG;QAM ; 30 MG;QAM ; 15 MG;QAM ; 30 MG;QAM ; 45 MG;QAM
     Dates: start: 20080601
  10. MIRTAZAPINE [Suspect]
     Indication: ANXIETY
     Dosage: 30 MG;QAM ; 15 MG;QAM ; 30 MG;QAM ; 15 MG;QAM ; 30 MG;QAM ; 45 MG;QAM
     Dates: start: 20090301, end: 20090401
  11. MIRTAZAPINE [Suspect]
     Indication: PANIC ATTACK
     Dosage: 30 MG;QAM ; 15 MG;QAM ; 30 MG;QAM ; 15 MG;QAM ; 30 MG;QAM ; 45 MG;QAM
     Dates: start: 20090301, end: 20090401
  12. MIRTAZAPINE [Suspect]
     Indication: DEPRESSION
     Dosage: 30 MG;QAM ; 15 MG;QAM ; 30 MG;QAM ; 15 MG;QAM ; 30 MG;QAM ; 45 MG;QAM
     Dates: start: 20090301, end: 20090401
  13. MIRTAZAPINE [Suspect]
     Indication: ANXIETY
     Dosage: 30 MG;QAM ; 15 MG;QAM ; 30 MG;QAM ; 15 MG;QAM ; 30 MG;QAM ; 45 MG;QAM
     Dates: start: 20090401, end: 20090501
  14. MIRTAZAPINE [Suspect]
     Indication: PANIC ATTACK
     Dosage: 30 MG;QAM ; 15 MG;QAM ; 30 MG;QAM ; 15 MG;QAM ; 30 MG;QAM ; 45 MG;QAM
     Dates: start: 20090401, end: 20090501
  15. MIRTAZAPINE [Suspect]
     Indication: DEPRESSION
     Dosage: 30 MG;QAM ; 15 MG;QAM ; 30 MG;QAM ; 15 MG;QAM ; 30 MG;QAM ; 45 MG;QAM
     Dates: start: 20090401, end: 20090501

REACTIONS (2)
  - HYPERTONIA [None]
  - PARKINSON'S DISEASE [None]
